FAERS Safety Report 20172582 (Version 1)
Quarter: 2021Q4

REPORT INFORMATION
  Report Type: Other
  Country: CN (occurrence: CN)
  Receive Date: 20211211
  Receipt Date: 20211211
  Transmission Date: 20220303
  Serious: Yes (Other)
  Sender: FDA-Public Use
  Company Number: CN-002147023-NVSC2021CN275442

PATIENT
  Age: 74 Year
  Sex: Male

DRUGS (5)
  1. RANIBIZUMAB [Suspect]
     Active Substance: RANIBIZUMAB
     Indication: Neovascular age-related macular degeneration
     Dosage: 0.05 ML
     Route: 065
     Dates: start: 20191127
  2. RANIBIZUMAB [Suspect]
     Active Substance: RANIBIZUMAB
     Dosage: 0.05 ML
     Route: 065
     Dates: start: 20191211
  3. RANIBIZUMAB [Suspect]
     Active Substance: RANIBIZUMAB
     Dosage: 0.05 ML
     Route: 065
     Dates: start: 20191225
  4. DOMPERDONE [Concomitant]
     Indication: Gastric hypomotility
     Dosage: 1 DOSAGE FORM
     Route: 048
     Dates: start: 2017
  5. ESCULIN [Concomitant]
     Active Substance: ESCULIN
     Indication: Age-related macular degeneration
     Dosage: 1 DRP (OCULAR)
     Route: 047
     Dates: start: 20200907, end: 20210120

REACTIONS (2)
  - Xerophthalmia [Recovered/Resolved]
  - Foreign body sensation in eyes [Recovered/Resolved]

NARRATIVE: CASE EVENT DATE: 20200928
